FAERS Safety Report 7621015-6 (Version None)
Quarter: 2011Q3

REPORT INFORMATION
  Report Type: 
  Country: None (occurrence: None)
  Receive Date: 20110719
  Receipt Date: 20101021
  Transmission Date: 20111222
  Serious: No
  Sender: FDA-Public Use
  Company Number: US-KINGPHARMUSA00001-K201001309

PATIENT
  Age: 36 Year
  Sex: Female
  Weight: 84.354 kg

DRUGS (4)
  1. CYTOMEL [Concomitant]
     Indication: HYPOTHYROIDISM
     Dosage: 5 MCG, QD
     Route: 048
  2. LEVOXYL [Suspect]
     Dosage: UNK
     Route: 048
  3. LEVOXYL [Suspect]
     Indication: HYPOTHYROIDISM
     Dosage: 100 MCG, QD
     Route: 048
  4. ATENOLOL [Concomitant]
     Indication: HYPERTENSION
     Dosage: 50 MG, QD

REACTIONS (4)
  - ORAL DISCOMFORT [None]
  - PANIC ATTACK [None]
  - CHOKING [None]
  - SENSATION OF FOREIGN BODY [None]
